FAERS Safety Report 26162194 (Version 1)
Quarter: 2025Q4

REPORT INFORMATION
  Report Type: Spontaneous
  Country: JP (occurrence: JP)
  Receive Date: 20251216
  Receipt Date: 20251216
  Transmission Date: 20260117
  Serious: Yes (Hospitalization)
  Sender: BAUSCH AND LOMB
  Company Number: JP-BAUSCH-BH-2025-022365

PATIENT
  Age: 64 Year
  Sex: Male

DRUGS (3)
  1. BRODALUMAB [Suspect]
     Active Substance: BRODALUMAB
     Indication: Product used for unknown indication
     Dosage: UNKNOWN
     Route: 058
     Dates: start: 202307
  2. BRODALUMAB [Suspect]
     Active Substance: BRODALUMAB
     Dosage: UNKNOWN
     Route: 058
     Dates: end: 202307
  3. BRODALUMAB [Suspect]
     Active Substance: BRODALUMAB
     Dosage: UNKNOWN
     Route: 058
     Dates: start: 202512

REACTIONS (2)
  - Illness [Unknown]
  - Erythema [Recovered/Resolved]
